FAERS Safety Report 24545405 (Version 2)
Quarter: 2025Q1

REPORT INFORMATION
  Report Type: Spontaneous
  Country: US (occurrence: US)
  Receive Date: 20241024
  Receipt Date: 20250205
  Transmission Date: 20250409
  Serious: Yes (Other)
  Sender: UNITED THERAPEUTICS
  Company Number: US-UNITED THERAPEUTICS-UNT-2024-033044

PATIENT
  Age: 73 Year
  Sex: Male
  Weight: 72.562 kg

DRUGS (44)
  1. ORENITRAM [Suspect]
     Active Substance: TREPROSTINIL
     Indication: Pulmonary arterial hypertension
     Dosage: 1.5 MG (12 TABLETS OF 0.125 MG), TID
     Dates: start: 20220412
  2. ORENITRAM [Suspect]
     Active Substance: TREPROSTINIL
  3. ORENITRAM [Suspect]
     Active Substance: TREPROSTINIL
     Indication: Pulmonary arterial hypertension
  4. DELTASONE [Suspect]
     Active Substance: PREDNISONE
     Indication: Dyspnoea exertional
     Dates: start: 20240903, end: 20240915
  5. OPSUMIT [Suspect]
     Active Substance: MACITENTAN
     Indication: Pulmonary arterial hypertension
     Dosage: 10 MG (1 TABLET OF 10 MG), QD
     Dates: start: 20210311
  6. OPSUMIT [Suspect]
     Active Substance: MACITENTAN
     Dosage: 10 MG (1 TABLET OF 10 MG), QD
     Dates: start: 20240209
  7. LIPITOR [Concomitant]
     Active Substance: ATORVASTATIN CALCIUM
     Indication: Product used for unknown indication
     Dosage: 40 MG (1 TABELT OF 40 MG), QHS
     Dates: start: 20240319
  8. DYMISTA [Concomitant]
     Active Substance: AZELASTINE HYDROCHLORIDE\FLUTICASONE PROPIONATE
     Indication: Product used for unknown indication
     Dosage: 1 SPRAY INTO EACH NOSTRILS, BID
     Dates: start: 20240620
  9. PLAQUENIL [Concomitant]
     Active Substance: HYDROXYCHLOROQUINE SULFATE
     Indication: Product used for unknown indication
     Dosage: 200 MG (1 TABLET OF 200 MG), BID
     Dates: start: 20240813
  10. COZAAR [Concomitant]
     Active Substance: LOSARTAN POTASSIUM
     Indication: Product used for unknown indication
     Dosage: 100 MG (1 TABLET OF 100 MG), QD
     Dates: start: 20240319
  11. PROCARDIA [Concomitant]
     Active Substance: NIFEDIPINE
     Indication: Pulmonary arterial hypertension
     Dosage: 30 MG, BID
     Dates: start: 20240318, end: 202403
  12. PROCARDIA [Concomitant]
     Active Substance: NIFEDIPINE
     Dosage: 30 MG, BID
     Dates: start: 20240319
  13. OFEV [Concomitant]
     Active Substance: NINTEDANIB
     Indication: Product used for unknown indication
     Dosage: 100 MG, BID (ONE CAPSULE WITH BREAKFAST AND WITH EVENING MEAL)
     Dates: start: 20240619
  14. KLOR-CON [Concomitant]
     Active Substance: POTASSIUM CHLORIDE
     Indication: Product used for unknown indication
  15. ALYQ [Concomitant]
     Active Substance: TADALAFIL
     Indication: Pulmonary arterial hypertension
     Dosage: 40 MG (2 TABLETS OF 20 MG), QD
     Dates: start: 20210409
  16. ALYQ [Concomitant]
     Active Substance: TADALAFIL
     Dosage: 40 MG (2 TABLETS OF 20 MG), QD
     Dates: start: 20240104
  17. DEMADEX [Concomitant]
     Active Substance: TORSEMIDE
     Indication: Pulmonary arterial hypertension
     Dosage: 30 MG (1 AND A HALF TABLET), QD
     Dates: start: 20210416
  18. DEMADEX [Concomitant]
     Active Substance: TORSEMIDE
     Dosage: 40 MG (2 TABLETS OF 20 MG), QD
     Dates: start: 20240924
  19. WIXELA INHUB [Concomitant]
     Active Substance: FLUTICASONE PROPIONATE\SALMETEROL XINAFOATE
     Indication: Product used for unknown indication
     Dosage: 500-50 MCG/DOSE (INHALE 1 PUFF INTO THE LUNGS), BID
     Dates: start: 20230831, end: 20240927
  20. PROVENTIL [Concomitant]
     Active Substance: ALBUTEROL
     Indication: Wheezing
  21. PFIZER-BIONTECH COVID-19 VACCINE [Concomitant]
     Active Substance: TOZINAMERAN
     Indication: COVID-19 immunisation
  22. PFIZER-BIONTECH COVID-19 VACCINE [Concomitant]
     Active Substance: TOZINAMERAN
  23. PFIZER-BIONTECH COVID-19 VACCINE [Concomitant]
     Active Substance: TOZINAMERAN
  24. PFIZER-BIONTECH COVID-19 VACCINE [Concomitant]
     Active Substance: TOZINAMERAN
  25. PFIZER-BIONTECH COVID-19 VACCINE [Concomitant]
     Active Substance: TOZINAMERAN
  26. INFLUENZA VIRUS VACCINE [Concomitant]
     Active Substance: INFLUENZA VIRUS VACCINE
     Indication: Influenza immunisation
  27. INFLUENZA VIRUS VACCINE [Concomitant]
     Active Substance: INFLUENZA VIRUS VACCINE
  28. PNEUMOVAX 23 [Concomitant]
     Active Substance: PNEUMOCOCCAL VACCINE, POLYVALENT 23
     Indication: Pneumococcal immunisation
  29. UNSPECIFIED INGREDIENT [Concomitant]
     Active Substance: UNSPECIFIED INGREDIENT
     Indication: Product used for unknown indication
  30. SHINGRIX [Concomitant]
     Active Substance: RECOMBINANT VARICELLA ZOSTER VIRUS (VZV) GLYCOPROTEIN E
     Indication: Product used for unknown indication
  31. ALBUTEROL [Concomitant]
     Active Substance: ALBUTEROL
     Indication: Wheezing
  32. VITAMIN C [Concomitant]
     Active Substance: ASCORBIC ACID
     Indication: Product used for unknown indication
     Dosage: 1000 MG, QD
  33. ZYRTEC [Concomitant]
     Active Substance: CETIRIZINE HYDROCHLORIDE
     Indication: Product used for unknown indication
     Dosage: 10 MG, QD
  34. VITAMIN D3 [Concomitant]
     Active Substance: CHOLECALCIFEROL
     Indication: Product used for unknown indication
     Dosage: 1 CAPSULE OF 1000 UNITS, QD
  35. NEXIUM [Concomitant]
     Active Substance: ESOMEPRAZOLE MAGNESIUM
     Indication: Product used for unknown indication
     Dosage: 40 MG, QD (EVERY MORNING BEFORE BREAKFAST)
  36. PROSCAR [Concomitant]
     Active Substance: FINASTERIDE
     Indication: Product used for unknown indication
     Dosage: 5 MG, QD
     Dates: start: 20240214
  37. FLOMAX [Concomitant]
     Active Substance: TAMSULOSIN HYDROCHLORIDE
     Indication: Product used for unknown indication
     Dosage: 0.4 MG, BID
     Dates: start: 20201222
  38. SOAANZ [Concomitant]
     Active Substance: TORSEMIDE
     Indication: Pulmonary arterial hypertension
     Dosage: 30 MG (1 AND A HALF TABLET), QD
     Dates: start: 20210416
  39. SOAANZ [Concomitant]
     Active Substance: TORSEMIDE
     Dosage: 40 MG (2 TABLETS OF 20 MG), QD
     Dates: start: 20240924
  40. ZINCATE [Concomitant]
     Indication: Product used for unknown indication
     Dosage: 50 MG, QD
  41. VOLTAREN [Concomitant]
     Active Substance: DICLOFENAC SODIUM
     Indication: Product used for unknown indication
     Dosage: 2-4 GM TO SHOULDER, TID
     Dates: start: 20221215
  42. ATROVENT [Concomitant]
     Active Substance: IPRATROPIUM BROMIDE
     Indication: Product used for unknown indication
     Dosage: (0.03%) 2 SPRAYS IN EACH NOSTRIL, BID
     Dates: start: 20240417
  43. ADCIRCA [Concomitant]
     Active Substance: TADALAFIL
     Indication: Pulmonary arterial hypertension
     Dosage: 40 MG, QD
  44. SILDENAFIL [Concomitant]
     Active Substance: SILDENAFIL
     Indication: Product used for unknown indication

REACTIONS (19)
  - Syncope [Recovered/Resolved]
  - Type 1 diabetes mellitus [Not Recovered/Not Resolved]
  - Tricuspid valve incompetence [Unknown]
  - Pericardial effusion [Unknown]
  - Wheezing [Not Recovered/Not Resolved]
  - Dizziness postural [Not Recovered/Not Resolved]
  - Dyspnoea exertional [Not Recovered/Not Resolved]
  - Cough [Not Recovered/Not Resolved]
  - Oedema peripheral [Recovering/Resolving]
  - Feeling hot [Not Recovered/Not Resolved]
  - Anxiety [Not Recovered/Not Resolved]
  - Oxygen saturation decreased [Recovered/Resolved]
  - Left ventricular hypertrophy [Unknown]
  - Left atrial volume increased [Unknown]
  - Dyspnoea [Unknown]
  - Rales [Unknown]
  - Nasal congestion [Unknown]
  - Pallor [Unknown]
  - N-terminal prohormone brain natriuretic peptide increased [Unknown]

NARRATIVE: CASE EVENT DATE: 20230615
